FAERS Safety Report 4971096-3 (Version None)
Quarter: 2006Q1

REPORT INFORMATION
  Report Type: 
  Country: None (occurrence: None)
  Receive Date: 20060228
  Receipt Date: 20050808
  Transmission Date: 20060701
  Serious: No
  Sender: FDA-Public Use
  Company Number: 05P-163-0307951-00

PATIENT
  Age: 23 Year
  Sex: Female

DRUGS (1)
  1. MIVACRON [Suspect]
     Indication: HYPOTONIA
     Dosage: 10MG ONCE AND 10MG 15-20 MINUTES LATER, INTRAVENOUS
     Route: 042
     Dates: start: 20050626, end: 20050626

REACTIONS (1)
  - DRUG EFFECT PROLONGED [None]
